FAERS Safety Report 10705314 (Version 3)
Quarter: 2015Q1

REPORT INFORMATION
  Report Type: Spontaneous
  Country: FR (occurrence: FR)
  Receive Date: 20150112
  Receipt Date: 20150121
  Transmission Date: 20150721
  Serious: Yes (Hospitalization, Other)
  Sender: FDA-Public Use
  Company Number: FR-PFIZER INC-2015003984

PATIENT
  Sex: Male
  Weight: 3.01 kg

DRUGS (12)
  1. XEROQUEL [Suspect]
     Active Substance: QUETIAPINE FUMARATE
     Indication: BIPOLAR DISORDER
     Dosage: 400 MG, DAILY
     Route: 064
  2. SYNTOCINON [Concomitant]
     Active Substance: OXYTOCIN
     Dosage: UNK
     Route: 064
     Dates: start: 20140902
  3. PROSTINE [Concomitant]
     Active Substance: DINOPROSTONE
     Dosage: UNK
     Route: 064
     Dates: start: 20140904
  4. LOXEN [Concomitant]
     Active Substance: NICARDIPINE HYDROCHLORIDE
     Dosage: UNK
     Route: 064
     Dates: start: 20140811
  5. LANTUS [Concomitant]
     Active Substance: INSULIN GLARGINE
     Dosage: UNK
     Route: 064
  6. XANAX [Suspect]
     Active Substance: ALPRAZOLAM
     Dosage: 0.25 MG, DAILY, AS NEEDED
     Route: 064
  7. BRICANYL [Concomitant]
     Active Substance: TERBUTALINE SULFATE
     Dosage: UNK
     Route: 064
     Dates: start: 20140824
  8. ESIDREX [Concomitant]
     Active Substance: HYDROCHLOROTHIAZIDE
     Dosage: 12.5 MG, DAILY
     Route: 064
     Dates: start: 20140819
  9. ZELITREX [Concomitant]
     Active Substance: VALACYCLOVIR HYDROCHLORIDE
     Indication: PRE-ECLAMPSIA
     Dosage: UNK
     Route: 064
     Dates: start: 20140826
  10. NOVORAPID [Concomitant]
     Active Substance: INSULIN ASPART
     Dosage: UNK
     Route: 064
  11. ALDOMET [Concomitant]
     Active Substance: METHYLDOPA
     Dosage: 500 MG, 3X/DAY
     Route: 064
     Dates: start: 20140902
  12. OROKEN [Concomitant]
     Active Substance: CEFIXIME
     Indication: URINARY TRACT INFECTION
     Dosage: UNK
     Route: 064
     Dates: start: 20140325, end: 20140329

REACTIONS (11)
  - Feeding disorder neonatal [Recovered/Resolved]
  - Hypotonia [Recovered/Resolved]
  - Cardiac septal hypertrophy [Unknown]
  - Dysphagia [Unknown]
  - Macrosomia [Unknown]
  - Oxygen saturation decreased [Recovered/Resolved]
  - Maternal exposure during pregnancy [Unknown]
  - Sedation [Recovered/Resolved]
  - Malaise [Recovered/Resolved]
  - Poor sucking reflex [Recovered/Resolved]
  - Foetal arrhythmia [Unknown]

NARRATIVE: CASE EVENT DATE: 20140820
